FAERS Safety Report 6673702-4 (Version None)
Quarter: 2010Q2

REPORT INFORMATION
  Report Type: 
  Country: None (occurrence: None)
  Receive Date: 20100408
  Receipt Date: 20100329
  Transmission Date: 20101027
  Serious: Yes (Death)
  Sender: FDA-Public Use
  Company Number: BR-SANOFI-AVENTIS-2010SA017640

PATIENT
  Sex: Female

DRUGS (1)
  1. DOLANTINA [Suspect]
     Indication: SEDATION
     Route: 051
     Dates: start: 20100322, end: 20100322

REACTIONS (4)
  - CONFUSIONAL STATE [None]
  - LOSS OF CONSCIOUSNESS [None]
  - PRODUCT QUALITY ISSUE [None]
  - UNRESPONSIVE TO STIMULI [None]
